FAERS Safety Report 4819857-5 (Version None)
Quarter: 2005Q4

REPORT INFORMATION
  Report Type: 
  Country: None (occurrence: None)
  Receive Date: 20051102
  Receipt Date: 20051018
  Transmission Date: 20060501
  Serious: Yes (Life-Threatening, Hospitalization)
  Sender: FDA-Public Use
  Company Number: S05-IDN-04163-01

PATIENT
  Age: 24 Year
  Sex: Female

DRUGS (1)
  1. MONUROL [Suspect]
     Indication: URINARY TRACT INFECTION
     Dosage: 3 G ONCE PO
     Dates: start: 20050926, end: 20050926

REACTIONS (1)
  - ANAPHYLACTIC REACTION [None]
